FAERS Safety Report 6967679-1 (Version None)
Quarter: 2010Q3

REPORT INFORMATION
  Report Type: 
  Country: None (occurrence: None)
  Receive Date: 20100823
  Receipt Date: 20100423
  Transmission Date: 20110219
  Serious: No
  Sender: FDA-Public Use
  Company Number: 010774

PATIENT
  Sex: Female

DRUGS (2)
  1. CIMZIA [Suspect]
     Indication: RHEUMATOID ARTHRITIS
     Dosage: (200 MG 1X/2 WEEKS SUBCUTANEOUS), ()
     Route: 058
     Dates: start: 20100201
  2. CIMZIA [Suspect]

REACTIONS (2)
  - DYSPEPSIA [None]
  - WHITE BLOOD CELL COUNT DECREASED [None]
